FAERS Safety Report 5564023-1 (Version None)
Quarter: 2007Q4

REPORT INFORMATION
  Report Type: 
  Country: None (occurrence: None)
  Receive Date: 20071217
  Receipt Date: 20071207
  Transmission Date: 20080405
  Serious: Yes (Other)
  Sender: FDA-Public Use
  Company Number: US-PFIZER INC-2007103764

PATIENT
  Sex: Male
  Weight: 81.6 kg

DRUGS (9)
  1. LIPITOR [Suspect]
     Indication: BLOOD CHOLESTEROL
  2. NORVASC [Concomitant]
  3. HYDRALAZINE [Concomitant]
  4. PHENOBARBITAL TAB [Concomitant]
  5. ALL OTHER THERAPEUTIC PRODUCTS [Concomitant]
  6. CARDURA [Concomitant]
  7. ALLOPURINOL [Concomitant]
  8. CLONIDINE [Concomitant]
  9. COREG [Concomitant]

REACTIONS (1)
  - RENAL IMPAIRMENT [None]
